FAERS Safety Report 12381380 (Version 1)
Quarter: 2016Q2

REPORT INFORMATION
  Report Type: Spontaneous
  Country: US (occurrence: US)
  Receive Date: 20160518
  Receipt Date: 20160518
  Transmission Date: 20160815
  Serious: No
  Sender: FDA-Public Use
  Company Number: US-BAYER-2016-095954

PATIENT
  Age: 58 Year
  Sex: Female
  Weight: 58.96 kg

DRUGS (1)
  1. MIRALAX [Suspect]
     Active Substance: POLYETHYLENE GLYCOL 3350
     Indication: COLONOSCOPY
     Dosage: 238 G, UNK
     Dates: start: 20160517, end: 20160517

REACTIONS (2)
  - Product use issue [None]
  - Circumstance or information capable of leading to medication error [None]

NARRATIVE: CASE EVENT DATE: 20160517
